FAERS Safety Report 4795848-8 (Version None)
Quarter: 2005Q4

REPORT INFORMATION
  Report Type: 
  Country: None (occurrence: None)
  Receive Date: 20051012
  Receipt Date: 20050930
  Transmission Date: 20060501
  Serious: Yes (Death, Other)
  Sender: FDA-Public Use
  Company Number: FR-BRISTOL-MYERS SQUIBB COMPANY-13133657

PATIENT
  Age: 39 Year
  Sex: Female

DRUGS (7)
  1. GLUCOPHAGE [Suspect]
     Dates: end: 20050520
  2. AVANDIA [Suspect]
     Dates: end: 20050520
  3. FORTZAAR [Suspect]
     Dates: end: 20050520
  4. DAONIL [Suspect]
     Dates: end: 20050520
  5. LOXEN LP [Concomitant]
     Route: 048
     Dates: start: 20050521
  6. ACTRAPID [Concomitant]
     Dates: start: 20050521
  7. MIXTARD HUMAN 70/30 [Concomitant]
     Dates: start: 20050521

REACTIONS (10)
  - ABORTION INDUCED [None]
  - CONGENITAL HYDROCEPHALUS [None]
  - CYTOMEGALOVIRUS ANTIBODY POSITIVE [None]
  - DIABETIC RETINOPATHY [None]
  - DRUG EXPOSURE DURING PREGNANCY [None]
  - PREGNANCY [None]
  - PROTEINURIA [None]
  - RUBELLA ANTIBODY POSITIVE [None]
  - STILLBIRTH [None]
  - TOXOPLASMA SEROLOGY POSITIVE [None]
